FAERS Safety Report 10345594 (Version 2)
Quarter: 2018Q4

REPORT INFORMATION
  Report Type: Spontaneous
  Country: CA (occurrence: CA)
  Receive Date: 20140728
  Receipt Date: 20181029
  Transmission Date: 20190204
  Serious: Yes (Other)
  Sender: FDA-Public Use
  Company Number: CA-PFIZER INC-2014209579

PATIENT
  Age: 49 Year
  Sex: Male

DRUGS (6)
  1. BUTRANS [Suspect]
     Active Substance: BUPRENORPHINE
     Dosage: 15 UG, Q1H (COMBINATION10 MCG/HR + 5MCG/HR PATCH)
     Route: 062
  2. CODEINE [Suspect]
     Active Substance: CODEINE
     Indication: HEADACHE
     Dosage: UNK
     Route: 065
  3. BUTRANS [Suspect]
     Active Substance: BUPRENORPHINE
     Dosage: 10 UG, (EVERY HOUR) (FREQ: 1 HOUR ; INTERVAL: 1)
     Route: 062
  4. BUTRANS [Suspect]
     Active Substance: BUPRENORPHINE
     Indication: HEADACHE
     Dosage: 5 UG, Q1H (EVERY HOUR) (FREQ: 1 HOUR ; INTERVAL: 1)
     Route: 062
     Dates: start: 2013
  5. MORPHINE SULFATE. [Suspect]
     Active Substance: MORPHINE SULFATE
     Indication: HEADACHE
     Dosage: 25 MG, UNK
     Route: 065
     Dates: start: 2013
  6. DEMEROL [Suspect]
     Active Substance: MEPERIDINE HYDROCHLORIDE
     Indication: HEADACHE
     Dosage: UNK
     Route: 065

REACTIONS (8)
  - Drug ineffective [Unknown]
  - Euphoric mood [Unknown]
  - Mobility decreased [Unknown]
  - Drug abuse [Unknown]
  - Asthenia [Unknown]
  - Accidental overdose [Unknown]
  - Intentional product misuse [Unknown]
  - Dyspnoea [Unknown]

NARRATIVE: CASE EVENT DATE: 2013
